FAERS Safety Report 5823256-7 (Version None)
Quarter: 2008Q3

REPORT INFORMATION
  Report Type: 
  Country: None (occurrence: None)
  Receive Date: 20080725
  Receipt Date: 20080715
  Transmission Date: 20090109
  Serious: Yes (Life-Threatening, Hospitalization)
  Sender: FDA-Public Use
  Company Number: FR-ASTRAZENECA-2008CG00956

PATIENT
  Sex: Male

DRUGS (4)
  1. DIPRIVAN [Suspect]
     Indication: GENERAL ANAESTHESIA
     Route: 042
     Dates: start: 20080617, end: 20080617
  2. KETAMINE HCL [Concomitant]
     Indication: SEDATION
  3. MORPHINE [Concomitant]
     Indication: GENERAL ANAESTHESIA
  4. CURARE [Concomitant]
     Indication: GENERAL ANAESTHESIA

REACTIONS (1)
  - VENTRICULAR TACHYCARDIA [None]
